FAERS Safety Report 5839506-7 (Version None)
Quarter: 2008Q3

REPORT INFORMATION
  Report Type: 
  Country: None (occurrence: None)
  Receive Date: 20080807
  Receipt Date: 20080725
  Transmission Date: 20090109
  Serious: Yes (Death)
  Sender: FDA-Public Use
  Company Number: 2008US001940

PATIENT
  Age: 65 Year
  Sex: Male

DRUGS (1)
  1. AMBISOME [Suspect]
     Indication: LYMPHOMA
     Dosage: 2.5 MG/KG, IV NOS
     Route: 042
     Dates: start: 20080703, end: 20080709

REACTIONS (6)
  - BLOOD PRESSURE DECREASED [None]
  - CONDITION AGGRAVATED [None]
  - FUNGAEMIA [None]
  - OXYGEN SATURATION DECREASED [None]
  - PLEURAL EFFUSION [None]
  - SEPSIS [None]
